FAERS Safety Report 7799304-4 (Version None)
Quarter: 2011Q4

REPORT INFORMATION
  Report Type: 
  Country: None (occurrence: None)
  Receive Date: 20111006
  Receipt Date: 20110926
  Transmission Date: 20120403
  Serious: Yes (Other)
  Sender: FDA-Public Use
  Company Number: US-JNJFOC-20110611422

PATIENT
  Age: 38 Year
  Sex: Female
  Weight: 106 kg

DRUGS (6)
  1. DIPHENHYDRAMINE HCL [Concomitant]
     Indication: PROPHYLAXIS
     Route: 042
     Dates: start: 20110623
  2. REMICADE [Suspect]
     Indication: CROHN'S DISEASE
     Route: 042
     Dates: start: 20110623
  3. METHYLPREDNISOLONE [Concomitant]
     Indication: PROPHYLAXIS
     Route: 042
     Dates: start: 20110623
  4. REMICADE [Suspect]
     Route: 042
     Dates: start: 20110818
  5. REMICADE [Suspect]
     Route: 042
     Dates: start: 20101201, end: 20110601
  6. REMICADE [Suspect]
     Route: 042
     Dates: start: 20090101

REACTIONS (3)
  - INFUSION SITE EXTRAVASATION [None]
  - INFUSION RELATED REACTION [None]
  - CENTRAL VENOUS CATHETERISATION [None]
